FAERS Safety Report 7712039-9 (Version None)
Quarter: 2011Q3

REPORT INFORMATION
  Report Type: 
  Country: None (occurrence: None)
  Receive Date: 20110826
  Receipt Date: 20110824
  Transmission Date: 20111222
  Serious: Yes (Other)
  Sender: FDA-Public Use
  Company Number: CH-PFIZER INC-2011196248

PATIENT
  Age: 23 Year
  Sex: Female

DRUGS (2)
  1. CYTOTEC [Suspect]
     Indication: ABORTION INDUCED
     Dosage: 400 UG, SINGLE
     Dates: start: 20110611, end: 20110611
  2. MIFEPRISTONE (MIFEPREX) [Suspect]
     Indication: ABORTION INDUCED
     Dosage: 600 MG, SINGLE
     Dates: start: 20110609, end: 20110609

REACTIONS (3)
  - HAEMORRHAGE [None]
  - ABDOMINAL PAIN [None]
  - DRUG INEFFECTIVE FOR UNAPPROVED INDICATION [None]
